FAERS Safety Report 7025389-9 (Version None)
Quarter: 2010Q4

REPORT INFORMATION
  Report Type: 
  Country: None (occurrence: None)
  Receive Date: 20101001
  Receipt Date: 20100922
  Transmission Date: 20110411
  Serious: Yes (Other)
  Sender: FDA-Public Use
  Company Number: PHHY2010US59744

PATIENT
  Sex: Female
  Weight: 47.166 kg

DRUGS (6)
  1. RECLAST [Suspect]
     Indication: OSTEOPOROSIS
     Dosage: 5 MG YEARLY
     Route: 042
     Dates: start: 20100801
  2. METHOTREXATE [Concomitant]
     Dosage: UNK
  3. ESTRADIOL [Concomitant]
     Indication: MENOPAUSE
     Route: 048
  4. VALIUM [Concomitant]
     Indication: HEADACHE
     Route: 048
  5. DOVON [Concomitant]
     Route: 048
  6. LYRICA [Concomitant]
     Route: 048

REACTIONS (5)
  - C-REACTIVE PROTEIN INCREASED [None]
  - HAND FRACTURE [None]
  - MYALGIA [None]
  - PYREXIA [None]
  - RED BLOOD CELL SEDIMENTATION RATE INCREASED [None]
